FAERS Safety Report 17279067 (Version 1)
Quarter: 2020Q1

REPORT INFORMATION
  Report Type: Spontaneous
  Country: MY (occurrence: MY)
  Receive Date: 20200116
  Receipt Date: 20200116
  Transmission Date: 20200409
  Serious: Yes (Hospitalization)
  Sender: FDA-Public Use
  Company Number: MY-ENDO PHARMACEUTICALS INC-2020-000156

PATIENT
  Age: 46 Year
  Sex: Female

DRUGS (3)
  1. PROPYLTHIOURACIL. [Concomitant]
     Active Substance: PROPYLTHIOURACIL
     Indication: THYROTOXIC CRISIS
     Dosage: 600 MG, UNKNOWN
     Route: 048
  2. PROPRANOLOL HYDROCHLORIDE. [Suspect]
     Active Substance: PROPRANOLOL HYDROCHLORIDE
     Indication: THYROTOXIC CRISIS
     Dosage: 40 MG, UNKNOWN
     Route: 048
  3. HYDROCORTISONE. [Concomitant]
     Active Substance: HYDROCORTISONE
     Indication: THYROTOXIC CRISIS
     Dosage: 200 MG, UNKNOWN
     Route: 065

REACTIONS (1)
  - Circulatory collapse [Recovering/Resolving]
